FAERS Safety Report 22535161 (Version 1)
Quarter: 2023Q2

REPORT INFORMATION
  Report Type: Spontaneous
  Country: CN (occurrence: CN)
  Receive Date: 20230608
  Receipt Date: 20230608
  Transmission Date: 20230722
  Serious: Yes (Other)
  Sender: FDA-Public Use
  Company Number: CN-BRISTOL-MYERS SQUIBB COMPANY-2023-080196

PATIENT
  Age: 66 Year
  Sex: Male

DRUGS (4)
  1. REVLIMID [Suspect]
     Active Substance: LENALIDOMIDE
     Indication: Follicular lymphoma
     Dosage: DOSE : 25 MG;     FREQ : UNAVAILABLE; DOSES RECEIVED: 1; NUMBER OF DAYS USING THE DRUG: 1
     Route: 048
     Dates: start: 20230520, end: 20230520
  2. OBINUTUZUMAB [Suspect]
     Active Substance: OBINUTUZUMAB
     Indication: Follicular lymphoma
     Dosage: DOSES RECEIVED: 1; NUMBER OF DAYS USING THE DRUG: 1
     Route: 041
     Dates: start: 20230520, end: 20230520
  3. OXALIPLATIN [Suspect]
     Active Substance: OXALIPLATIN
     Indication: Follicular lymphoma
     Dosage: DOSES RECEIVED: 1; NUMBER OF DAYS USING THE DRUG: 1
     Route: 041
     Dates: start: 20230520, end: 20230520
  4. GEMCITABINE [Suspect]
     Active Substance: GEMCITABINE
     Indication: Follicular lymphoma
     Dosage: DOSES RECEIVED: 1; NUMBER OF DAYS USING THE DRUG: 1
     Route: 041
     Dates: start: 20230520, end: 20230520

REACTIONS (1)
  - Myelosuppression [Recovering/Resolving]

NARRATIVE: CASE EVENT DATE: 20230530
